FAERS Safety Report 6317391-7 (Version None)
Quarter: 2009Q3

REPORT INFORMATION
  Report Type: 
  Country: None (occurrence: None)
  Receive Date: 20090820
  Receipt Date: 20090820
  Transmission Date: 20100115
  Serious: Yes (Other)
  Sender: FDA-Public Use
  Company Number: None

PATIENT
  Sex: Female

DRUGS (1)
  1. FORTICAL [Suspect]

REACTIONS (4)
  - DYSGEUSIA [None]
  - NASAL DISCOMFORT [None]
  - NAUSEA [None]
  - RHINALGIA [None]
